FAERS Safety Report 8798911 (Version 2)
Quarter: 2013Q4

REPORT INFORMATION
  Report Type: Spontaneous
  Country: US (occurrence: US)
  Receive Date: 20120920
  Receipt Date: 20131211
  Transmission Date: 20140711
  Serious: No
  Sender: FDA-Public Use
  Company Number: US-PFIZER INC-2012231276

PATIENT
  Sex: Female

DRUGS (2)
  1. CELEBREX [Suspect]
     Dosage: UNK
     Dates: end: 20120910
  2. EFFEXOR XR [Suspect]
     Dosage: UNK
     Dates: end: 20120910

REACTIONS (3)
  - Insomnia [Unknown]
  - Eating disorder [Unknown]
  - Abdominal discomfort [Unknown]
